FAERS Safety Report 12432044 (Version 1)
Quarter: 2016Q2

REPORT INFORMATION
  Report Type: Spontaneous
  Country: CA (occurrence: CA)
  Receive Date: 20160603
  Receipt Date: 20160603
  Transmission Date: 20160815
  Serious: Yes (Other)
  Sender: FDA-Public Use
  Company Number: CA-TEVA-663100USA

PATIENT
  Age: 69 Year
  Sex: Female

DRUGS (15)
  1. AMITRIPTYLINE [Concomitant]
     Active Substance: AMITRIPTYLINE
     Dosage: 75 MG AT BEDTIME
     Route: 065
  2. NITROFURANTOIN. [Concomitant]
     Active Substance: NITROFURANTOIN
     Dosage: 50 MG AT BEDTIME
     Route: 065
  3. SPIRONOLACTONE. [Interacting]
     Active Substance: SPIRONOLACTONE
     Dosage: 100 MG (1 TABLET IN THE MORNING AND HALF A TABLET AT LUNCH)
     Route: 065
  4. LEVOTHYROXINE SODIUM. [Interacting]
     Active Substance: LEVOTHYROXINE SODIUM
     Dosage: 100 MICROG/D
     Route: 065
  5. DILTIAZEM [Concomitant]
     Active Substance: DILTIAZEM
     Dosage: 240 MG/D
     Route: 065
  6. NITROGLYCERIN. [Concomitant]
     Active Substance: NITROGLYCERIN
     Dosage: 0.2 MG/HOUR TO BE WORN 10 HOUR/DAY
     Route: 065
  7. QUETIAPINE. [Concomitant]
     Active Substance: QUETIAPINE
     Route: 065
  8. CELECOXIB. [Interacting]
     Active Substance: CELECOXIB
     Dosage: 200 MG/D
     Route: 065
  9. ESCITALOPRAM [Concomitant]
     Active Substance: ESCITALOPRAM OXALATE
     Dosage: 15MG/D
     Route: 065
  10. RIVAROXABAN [Concomitant]
     Active Substance: RIVAROXABAN
     Dosage: 20 MG/D
     Route: 065
  11. LANSOPRAZOLE. [Concomitant]
     Active Substance: LANSOPRAZOLE
     Dosage: 30MG/DAY
     Route: 065
  12. FUROSEMIDE. [Suspect]
     Active Substance: FUROSEMIDE
     Dosage: 40 MG/D
     Route: 065
  13. DIGOXIN. [Interacting]
     Active Substance: DIGOXIN
     Dosage: 0.25 MG/D
     Route: 065
  14. ZOPICLONE [Concomitant]
     Active Substance: ZOPICLONE
     Dosage: 5 MG AT BEDTIME AS NEEDED
     Route: 065
  15. OLANZAPINE. [Concomitant]
     Active Substance: OLANZAPINE
     Dosage: 10 MG AT BEDTIME
     Route: 065

REACTIONS (3)
  - Drug interaction [Recovered/Resolved]
  - Renal impairment [Recovering/Resolving]
  - Toxicity to various agents [Recovered/Resolved]
